FAERS Safety Report 6412094-2 (Version None)
Quarter: 2009Q4

REPORT INFORMATION
  Report Type: 
  Country: None (occurrence: None)
  Receive Date: 20091023
  Receipt Date: 20091014
  Transmission Date: 20100525
  Serious: Yes (Life-Threatening, Hospitalization)
  Sender: FDA-Public Use
  Company Number: JP-ASTRAZENECA-2009SE11128

PATIENT
  Age: 66 Year
  Sex: Male

DRUGS (12)
  1. MEROPEN [Suspect]
     Indication: PNEUMONIA
     Route: 041
     Dates: start: 20081206, end: 20081210
  2. ALEVIATIN [Suspect]
     Indication: CONVULSION
     Route: 048
     Dates: start: 20081204, end: 20081209
  3. HORIZON [Concomitant]
     Indication: CONVULSION
  4. PHENOBARBITAL SODIUM 100MG CAP [Concomitant]
     Indication: ACUTE RESPIRATORY DISTRESS SYNDROME
     Route: 041
     Dates: start: 20081129
  5. PHENOBARBITAL SODIUM 100MG CAP [Concomitant]
     Indication: PNEUMONIA
     Route: 041
     Dates: start: 20081129
  6. UNASYN [Concomitant]
     Indication: ACUTE RESPIRATORY DISTRESS SYNDROME
     Route: 041
     Dates: start: 20081203, end: 20081206
  7. UNASYN [Concomitant]
     Indication: PNEUMONIA
     Route: 041
     Dates: start: 20081203, end: 20081206
  8. ELASPOL [Concomitant]
     Indication: ACUTE RESPIRATORY DISTRESS SYNDROME
     Route: 041
     Dates: start: 20081203, end: 20081214
  9. ELASPOL [Concomitant]
     Indication: PNEUMONIA
     Route: 041
     Dates: start: 20081203, end: 20081214
  10. STEROID-PULSE THERAPY [Concomitant]
     Indication: ACUTE RESPIRATORY DISTRESS SYNDROME
  11. DEPAKENE [Concomitant]
     Indication: CONVULSION
     Route: 048
     Dates: start: 20081209
  12. EXCEGRAN [Concomitant]
     Indication: CONVULSION
     Route: 048
     Dates: start: 20081129, end: 20081209

REACTIONS (1)
  - INTERSTITIAL LUNG DISEASE [None]
